FAERS Safety Report 4277414-6 (Version None)
Quarter: 2004Q1

REPORT INFORMATION
  Report Type: 
  Country: None (occurrence: None)
  Receive Date: 20040122
  Receipt Date: 20040121
  Transmission Date: 20041129
  Serious: Yes (Hospitalization)
  Sender: FDA-Public Use
  Company Number: ES-GLAXOSMITHKLINE-A0494302A

PATIENT
  Age: 36 Year
  Sex: Female

DRUGS (2)
  1. NAVELBINE [Suspect]
     Indication: BREAST CANCER
     Dosage: 51MG SEE DOSAGE TEXT
     Route: 042
     Dates: start: 20020806
  2. GEMCITABINE [Concomitant]
     Indication: BREAST CANCER
     Dosage: 2125MG SEE DOSAGE TEXT
     Route: 065
     Dates: start: 20020806

REACTIONS (3)
  - CELLULITIS [None]
  - LYMPHANGITIS [None]
  - PYREXIA [None]
